FAERS Safety Report 18555629 (Version 1)
Quarter: 2020Q4

REPORT INFORMATION
  Report Type: Spontaneous
  Country: IL (occurrence: IL)
  Receive Date: 20201127
  Receipt Date: 20201127
  Transmission Date: 20210114
  Serious: Yes (Hospitalization, Other)
  Sender: FDA-Public Use
  Company Number: IL-009507513-2011ISR015617

PATIENT
  Age: 85 Year
  Sex: Female

DRUGS (1)
  1. PEMBROLIZUMAB. [Suspect]
     Active Substance: PEMBROLIZUMAB
     Indication: SQUAMOUS CELL CARCINOMA OF THE ORAL CAVITY
     Dosage: 200 MILLIGRAM, EVERY 21 DAYS
     Dates: start: 20200329

REACTIONS (3)
  - Erythema multiforme [Unknown]
  - Malignant neoplasm progression [Unknown]
  - Oral lichenoid reaction [Unknown]

NARRATIVE: CASE EVENT DATE: 2020
